FAERS Safety Report 9117820 (Version 1)
Quarter: 2013Q1

REPORT INFORMATION
  Report Type: Report from Study
  Country: DK (occurrence: DK)
  Receive Date: 20130225
  Receipt Date: 20130225
  Transmission Date: 20140127
  Serious: Yes (Hospitalization)
  Sender: FDA-Public Use
  Company Number: DK-BRISTOL-MYERS SQUIBB COMPANY-15812993

PATIENT
  Age: 69 Year
  Sex: Male

DRUGS (17)
  1. IPILIMUMAB [Suspect]
     Indication: PROSTATE CANCER
     Dosage: 22SEP10:810MG,10MAR11:760MG; 760 MG TOTAL DOSE
     Route: 042
     Dates: start: 20100922, end: 20110310
  2. ZOLADEX [Concomitant]
     Route: 058
     Dates: start: 20080826
  3. OMEPRAZOL [Concomitant]
     Dosage: 2009-08DEC10,09DEC10-24JAN11;20MG,25JAN11-ONG;40MG
     Route: 048
     Dates: start: 2009, end: 20101208
  4. ZOMETA [Concomitant]
     Route: 042
     Dates: start: 20090311
  5. DICLOFENAC [Concomitant]
     Dosage: DICLODAN
     Route: 048
     Dates: start: 2009
  6. KODIMAGNYL [Concomitant]
     Route: 048
     Dates: start: 2007
  7. PARACETAMOL [Concomitant]
     Route: 048
  8. FENTANYL [Concomitant]
     Dosage: 10JUL09-01NOV10,02NOV10-16NOV10;75MCG,17NOV10-24JAN11;50MCG,25JAN11-18APR11;75MCG,19APR11-ONG;100MCG
     Route: 062
     Dates: start: 20090710
  9. OXYCODONE [Concomitant]
     Route: 048
  10. PREDNISOLONE [Concomitant]
     Dosage: 06SEP10-17SEP10,18SEP10-21DEC10;10MG,22DEC10-ONG
     Route: 048
     Dates: start: 20100906
  11. BROMAZEPAM [Concomitant]
     Route: 048
  12. METHYLPHENIDATE [Concomitant]
     Route: 048
     Dates: start: 20101208
  13. CETIRIZINE [Concomitant]
     Route: 048
     Dates: start: 20101022
  14. HYDROCORTISONE [Concomitant]
     Dates: start: 20101022
  15. LOPERAMIDE [Concomitant]
     Route: 048
     Dates: start: 20101022, end: 20101102
  16. OMEPRAZOL [Concomitant]
     Dosage: 9DEC10-24JAN11 20MG?25JAN11-ONG 40MG
     Route: 048
     Dates: start: 20101209
  17. PHENOXYMETHYLPENICILLIN [Concomitant]
     Dosage: 1DF:2 MILLION
     Route: 048
     Dates: start: 20110125, end: 20110201

REACTIONS (1)
  - Pyrexia [Recovered/Resolved]
